FAERS Safety Report 25830825 (Version 1)
Quarter: 2025Q3

REPORT INFORMATION
  Report Type: Spontaneous
  Country: OM (occurrence: OM)
  Receive Date: 20250922
  Receipt Date: 20250922
  Transmission Date: 20251020
  Serious: Yes (Death, Other)
  Sender: ALEXION PHARMACEUTICALS
  Company Number: OM-AstraZeneca-CH-00946540A

PATIENT
  Sex: Female

DRUGS (1)
  1. ULTOMIRIS [Suspect]
     Active Substance: RAVULIZUMAB-CWVZ
     Route: 065

REACTIONS (1)
  - Death [Fatal]
